FAERS Safety Report 7479233-6 (Version None)
Quarter: 2011Q2

REPORT INFORMATION
  Report Type: 
  Country: None (occurrence: None)
  Receive Date: 20110513
  Receipt Date: 20110505
  Transmission Date: 20111010
  Serious: Yes (Death, Other)
  Sender: FDA-Public Use
  Company Number: B0703927A

PATIENT
  Sex: Female

DRUGS (10)
  1. MELPHALAN HYDROCHLORIDE [Suspect]
     Indication: MULTIPLE MYELOMA
     Dosage: 12MG PER DAY
     Route: 048
     Dates: start: 20080130, end: 20081013
  2. PREDNISONE [Suspect]
     Indication: MULTIPLE MYELOMA
     Dosage: 130MG PER DAY
     Route: 048
     Dates: start: 20080130, end: 20081013
  3. EPREX [Concomitant]
     Route: 058
  4. ZOLOFT [Concomitant]
     Dosage: 50MG IN THE MORNING
     Route: 048
  5. NORMIX [Concomitant]
     Dosage: 800MG FOUR TIMES PER DAY
     Route: 048
  6. PLATELETS [Concomitant]
     Indication: MULTIPLE MYELOMA
     Dates: start: 20090127
  7. OMEPRAZOLE [Concomitant]
     Route: 048
  8. LENALIDOMIDE [Suspect]
     Indication: MULTIPLE MYELOMA
     Dosage: 10MG PER DAY
     Route: 048
     Dates: start: 20080131, end: 20081129
  9. EUTIROX [Concomitant]
     Indication: HYPOTHYROIDISM
     Route: 048
  10. TRANEXAMIC ACID [Concomitant]

REACTIONS (1)
  - CHRONIC MYELOMONOCYTIC LEUKAEMIA [None]
